FAERS Safety Report 12359372 (Version 1)
Quarter: 2016Q2

REPORT INFORMATION
  Report Type: Spontaneous
  Country: US (occurrence: None)
  Receive Date: 20160511
  Receipt Date: 20160511
  Transmission Date: 20160815
  Serious: Yes (Other)
  Sender: FDA-Public Use
  Company Number: None

PATIENT
  Age: 18 Month
  Sex: Male

DRUGS (1)
  1. CARNITOR SF [Suspect]
     Active Substance: LEVOCARNITINE
     Indication: EPILEPSY
     Route: 048
     Dates: start: 201505, end: 201605

REACTIONS (2)
  - Ketogenic diet [None]
  - Medical diet [None]

NARRATIVE: CASE EVENT DATE: 20160307
